FAERS Safety Report 14958932 (Version 4)
Quarter: 2018Q2

REPORT INFORMATION
  Report Type: Report from Study
  Country: FR (occurrence: FR)
  Receive Date: 20180531
  Receipt Date: 20180614
  Transmission Date: 20180711
  Serious: Yes (Hospitalization)
  Sender: FDA-Public Use
  Company Number: FR-EISAI MEDICAL RESEARCH-EC-2018-040507

PATIENT
  Age: 9 Year
  Sex: Male
  Weight: 30.9 kg

DRUGS (4)
  1. EPITOMAX [Concomitant]
     Active Substance: TOPIRAMATE
  2. PERAMPANEL [Suspect]
     Active Substance: PERAMPANEL
     Indication: PARTIAL SEIZURES
     Route: 048
     Dates: start: 20171103
  3. KEPPRA [Concomitant]
     Active Substance: LEVETIRACETAM
  4. BUCCOLAM [Concomitant]
     Active Substance: MIDAZOLAM HYDROCHLORIDE

REACTIONS (1)
  - Seizure [Recovered/Resolved]

NARRATIVE: CASE EVENT DATE: 20180506
